FAERS Safety Report 6782284-8 (Version None)
Quarter: 2010Q2

REPORT INFORMATION
  Report Type: 
  Country: None (occurrence: None)
  Receive Date: 20100621
  Receipt Date: 20100611
  Transmission Date: 20101027
  Serious: Yes (Hospitalization, Other)
  Sender: FDA-Public Use
  Company Number: US-JNJFOC-20100507176

PATIENT
  Age: 3 Year
  Sex: Male

DRUGS (2)
  1. CHILDREN'S MOTRIN [Suspect]
     Indication: NASOPHARYNGITIS
     Dosage: ^11 TO 12 DOSES IN 4 DAYS^, ^2 TO 3 TIMES A DAY^
     Route: 048
  2. CHILDREN'S MOTRIN [Suspect]
     Indication: PYREXIA
     Dosage: ^11 TO 12 DOSES IN 4 DAYS^, ^2 TO 3 TIMES A DAY^
     Route: 048

REACTIONS (2)
  - DUODENAL ULCER PERFORATION [None]
  - PRODUCT QUALITY ISSUE [None]
